FAERS Safety Report 20584988 (Version 1)
Quarter: 2022Q1

REPORT INFORMATION
  Report Type: Report from Study
  Country: JP (occurrence: JP)
  Receive Date: 20220311
  Receipt Date: 20220311
  Transmission Date: 20220423
  Serious: Yes (Other)
  Sender: FDA-Public Use
  Company Number: JP-BRISTOL-MYERS SQUIBB COMPANY-BMS-2022-037297

PATIENT
  Age: 83 Year
  Sex: Female

DRUGS (2)
  1. DASATINIB [Suspect]
     Active Substance: DASATINIB
     Indication: Chronic myeloid leukaemia
     Dosage: 100 MG/DAY FOR 78 DAYS
     Route: 048
     Dates: start: 20140708, end: 20140924
  2. DASATINIB [Suspect]
     Active Substance: DASATINIB
     Dosage: 20 MGL/DAY FOR 262 DAYS
     Route: 048
     Dates: start: 20141023, end: 20150712

REACTIONS (2)
  - Malignant pleural effusion [Recovering/Resolving]
  - Ovarian neoplasm [Recovering/Resolving]

NARRATIVE: CASE EVENT DATE: 20150803
